FAERS Safety Report 4974734-4 (Version None)
Quarter: 2006Q2

REPORT INFORMATION
  Report Type: 
  Country: None (occurrence: None)
  Receive Date: 20060417
  Receipt Date: 20060407
  Transmission Date: 20061013
  Serious: Yes (Hospitalization)
  Sender: FDA-Public Use
  Company Number: CZ-MERCK-0604USA01679

PATIENT
  Age: 39 Year
  Sex: Female

DRUGS (5)
  1. PEPCID [Suspect]
     Route: 048
  2. MEPREDNISONE [Concomitant]
     Route: 065
  3. AZATHIOPRINE [Concomitant]
     Route: 065
  4. MELOXICAM [Concomitant]
     Indication: ARTHRITIS
     Route: 065
  5. TERBINAFINE HCL [Suspect]
     Indication: ONYCHOMYCOSIS
     Route: 065

REACTIONS (4)
  - CONDITION AGGRAVATED [None]
  - CUTANEOUS LUPUS ERYTHEMATOSUS [None]
  - MYALGIA [None]
  - ONYCHOMYCOSIS [None]
